FAERS Safety Report 4677617-2 (Version None)
Quarter: 2005Q2

REPORT INFORMATION
  Report Type: 
  Country: None (occurrence: None)
  Receive Date: 20050531
  Receipt Date: 20050310
  Transmission Date: 20051028
  Serious: Yes (Hospitalization)
  Sender: FDA-Public Use
  Company Number: JP-ROCHE-398037

PATIENT
  Age: 65 Year
  Sex: Male
  Weight: 68 kg

DRUGS (5)
  1. PANALDINE [Suspect]
     Indication: THROMBOSIS PROPHYLAXIS
     Route: 048
     Dates: start: 20041222, end: 20050214
  2. WARFARIN [Concomitant]
     Route: 048
     Dates: start: 20040115, end: 20050221
  3. SIGMART [Concomitant]
     Route: 048
     Dates: start: 20041203, end: 20050302
  4. GASTER [Concomitant]
     Route: 048
     Dates: start: 20041203, end: 20050302
  5. MYSLEE [Concomitant]
     Route: 048
     Dates: start: 20041215

REACTIONS (4)
  - HEPATIC FUNCTION ABNORMAL [None]
  - JAUNDICE [None]
  - LIVER DISORDER [None]
  - PRURITUS [None]
